FAERS Safety Report 19035417 (Version 2)
Quarter: 2021Q2

REPORT INFORMATION
  Report Type: Spontaneous
  Country: DE (occurrence: DE)
  Receive Date: 20210320
  Receipt Date: 20210625
  Transmission Date: 20210717
  Serious: Yes (Death, Hospitalization, Other)
  Sender: FDA-Public Use
  Company Number: DE-IPCA LABORATORIES LIMITED-IPC-2021-DE-000589

PATIENT

DRUGS (3)
  1. METFORMIN [Suspect]
     Active Substance: METFORMIN HYDROCHLORIDE
     Indication: SUICIDE ATTEMPT
     Dosage: UNK
     Route: 065
  2. AMLODIPINE [Suspect]
     Active Substance: AMLODIPINE BESYLATE
     Indication: SUICIDE ATTEMPT
     Dosage: UNK
     Route: 065
  3. BISOPROLOL TABLET [Suspect]
     Active Substance: BISOPROLOL
     Indication: SUICIDE ATTEMPT
     Dosage: 5 MILLIGRAM 90 TABLETS
     Route: 048

REACTIONS (13)
  - Cardiac arrest [Fatal]
  - Compartment syndrome [Fatal]
  - Suicide attempt [Fatal]
  - Lactic acidosis [Fatal]
  - Vasoplegia syndrome [Fatal]
  - Cardiogenic shock [Fatal]
  - Haemodynamic instability [Fatal]
  - Toxicity to various agents [Fatal]
  - Circulatory collapse [Fatal]
  - Multiple organ dysfunction syndrome [Fatal]
  - Ejection fraction decreased [Fatal]
  - Rhabdomyolysis [Fatal]
  - Intentional overdose [Fatal]
